FAERS Safety Report 21600957 (Version 2)
Quarter: 2022Q4

REPORT INFORMATION
  Report Type: Report from Study
  Country: US (occurrence: US)
  Receive Date: 20221116
  Receipt Date: 20221118
  Transmission Date: 20230113
  Serious: No
  Sender: FDA-Public Use
  Company Number: US-ABBVIE-4150215

PATIENT
  Sex: Female

DRUGS (26)
  1. RINVOQ [Suspect]
     Active Substance: UPADACITINIB
     Indication: Arthritis
     Dosage: 15 MILLIGRAM
     Route: 048
     Dates: start: 20220921
  2. ADDERALL XR CAP [Concomitant]
     Indication: Product used for unknown indication
  3. ROZEREM TAB 8MG; [Concomitant]
     Indication: Product used for unknown indication
  4. PROVENTIL AER HFA; [Concomitant]
     Indication: Product used for unknown indication
  5. NAPROXEN TAB 500MG; [Concomitant]
     Indication: Product used for unknown indication
  6. VOLTAREN GEL 1%; [Concomitant]
     Indication: Product used for unknown indication
  7. HALOPERIDOL TAB 5MG; [Concomitant]
     Indication: Product used for unknown indication
  8. VALIUM TAB 5MG; [Concomitant]
     Indication: Product used for unknown indication
  9. DESLORATADIN TAB 5MG; [Concomitant]
     Indication: Product used for unknown indication
  10. FOLIC ACID TAB 1MG; [Concomitant]
     Indication: Product used for unknown indication
  11. CROMOLYN SOD CON 100/5ML; [Concomitant]
     Indication: Product used for unknown indication
  12. QVAR REDIHAL AER 40MCG; [Concomitant]
     Indication: Product used for unknown indication
  13. ZANTAC 360 TAB 10MG; [Concomitant]
     Indication: Product used for unknown indication
  14. KETOROLAC TAB 10MG; [Concomitant]
     Indication: Product used for unknown indication
  15. ONDANSETRON [Concomitant]
     Active Substance: ONDANSETRON
     Indication: Product used for unknown indication
  16. EPIPEN 2-PAK INJ [Concomitant]
     Indication: Product used for unknown indication
  17. INFLIXIMAB INJ [Concomitant]
     Indication: Product used for unknown indication
  18. PROPRANOLOL [Concomitant]
     Active Substance: PROPRANOLOL HYDROCHLORIDE
     Indication: Product used for unknown indication
  19. ONDANSETRON [Concomitant]
     Active Substance: ONDANSETRON
     Indication: Product used for unknown indication
  20. ESTRADIOL [Concomitant]
     Active Substance: ESTRADIOL
     Indication: Product used for unknown indication
  21. METHOTREXATE [Concomitant]
     Active Substance: METHOTREXATE
     Indication: Product used for unknown indication
  22. XELJANZ XR [Concomitant]
     Active Substance: TOFACITINIB CITRATE
     Indication: Product used for unknown indication
  23. SUMATRIPTAN [Concomitant]
     Active Substance: SUMATRIPTAN
     Indication: Product used for unknown indication
  24. LINZESS [Concomitant]
     Active Substance: LINACLOTIDE
     Indication: Product used for unknown indication
     Dosage: 290 MCG
  25. TIZANIDINE [Concomitant]
     Active Substance: TIZANIDINE
     Indication: Product used for unknown indication
  26. ZYRTEC [Concomitant]
     Active Substance: CETIRIZINE HYDROCHLORIDE
     Indication: Product used for unknown indication

REACTIONS (3)
  - Fatigue [Not Recovered/Not Resolved]
  - Joint stiffness [Not Recovered/Not Resolved]
  - Condition aggravated [Not Recovered/Not Resolved]

NARRATIVE: CASE EVENT DATE: 20220101
